FAERS Safety Report 19056307 (Version 1)
Quarter: 2021Q1

REPORT INFORMATION
  Report Type: Spontaneous
  Country: US (occurrence: US)
  Receive Date: 20210324
  Receipt Date: 20210324
  Transmission Date: 20210420
  Serious: Yes (Other)
  Sender: FDA-Public Use
  Company Number: None

PATIENT
  Age: 39 Year
  Sex: Male
  Weight: 72.57 kg

DRUGS (1)
  1. SUBOXONE [Suspect]
     Active Substance: BUPRENORPHINE HYDROCHLORIDE\NALOXONE HYDROCHLORIDE
     Indication: DRUG DEPENDENCE
     Dosage: 8MG/2MG  12 DAILY  SL
     Route: 060
     Dates: start: 20210319, end: 20210323

REACTIONS (4)
  - Headache [None]
  - Vomiting [None]
  - Diarrhoea [None]
  - Nausea [None]

NARRATIVE: CASE EVENT DATE: 20210323
